FAERS Safety Report 12672039 (Version 1)
Quarter: 2016Q3

REPORT INFORMATION
  Report Type: Spontaneous
  Country: US (occurrence: None)
  Receive Date: 20160819
  Receipt Date: 20160819
  Transmission Date: 20161109
  Serious: No
  Sender: FDA-Public Use
  Company Number: None

PATIENT
  Age: 43 Year
  Sex: Male

DRUGS (1)
  1. VIVITROL [Suspect]
     Active Substance: NALTREXONE
     Indication: ALCOHOL ABUSE
     Route: 058
     Dates: start: 201608

REACTIONS (4)
  - Decreased appetite [None]
  - Injection site reaction [None]
  - Headache [None]
  - Insomnia [None]

NARRATIVE: CASE EVENT DATE: 201608
